FAERS Safety Report 10090663 (Version 1)
Quarter: 2014Q2

REPORT INFORMATION
  Report Type: Spontaneous
  Country: US (occurrence: US)
  Receive Date: 20140421
  Receipt Date: 20140421
  Transmission Date: 20141212
  Serious: Yes (Hospitalization, Disabling, Other)
  Sender: FDA-Public Use
  Company Number: US-ABBVIE-14P-163-1227568-00

PATIENT
  Age: 57 Year
  Sex: Male
  Weight: 96 kg

DRUGS (9)
  1. ANDROGEL [Suspect]
     Indication: ANDROGEN REPLACEMENT THERAPY
     Route: 061
  2. ANDROGEL [Suspect]
     Route: 061
     Dates: end: 20071211
  3. ANDROGEL [Suspect]
     Route: 061
  4. BIAXIN [Suspect]
     Indication: PRODUCT USED FOR UNKNOWN INDICATION
  5. AVODART [Suspect]
     Indication: PRODUCT USED FOR UNKNOWN INDICATION
     Route: 048
  6. AVODART [Suspect]
     Dates: end: 20071211
  7. ARIMIDEX [Suspect]
     Indication: PRODUCT USED FOR UNKNOWN INDICATION
     Route: 048
  8. ARIMIDEX [Suspect]
     Route: 048
     Dates: end: 20071211
  9. LIPITOR [Concomitant]
     Indication: PRODUCT USED FOR UNKNOWN INDICATION
     Route: 048

REACTIONS (27)
  - Mesenteric vein thrombosis [Recovered/Resolved with Sequelae]
  - Staphylococcal infection [Unknown]
  - Disability [Not Recovered/Not Resolved]
  - Portal vein thrombosis [Recovered/Resolved]
  - Abdominal pain [Unknown]
  - Anaemia [Unknown]
  - Ascites [Unknown]
  - Atelectasis [Unknown]
  - Blood testosterone increased [Unknown]
  - Chills [Unknown]
  - Gastritis [Unknown]
  - Gastrooesophageal reflux disease [Unknown]
  - Haematocrit decreased [Unknown]
  - Haemoglobin decreased [Unknown]
  - Hypercoagulation [Recovered/Resolved]
  - Hyperventilation [Unknown]
  - Ileus paralytic [Unknown]
  - Localised oedema [Unknown]
  - Mesenteric vascular insufficiency [Recovered/Resolved]
  - Oral candidiasis [Unknown]
  - Pain [Unknown]
  - Phlebitis [Unknown]
  - Platelet count increased [Unknown]
  - Pleural effusion [Unknown]
  - Pyrexia [Unknown]
  - White blood cell count increased [Recovered/Resolved]
  - Herpes simplex [Unknown]
